FAERS Safety Report 6947008-X (Version None)
Quarter: 2010Q3

REPORT INFORMATION
  Report Type: 
  Country: None (occurrence: None)
  Receive Date: 20100825
  Receipt Date: 20100810
  Transmission Date: 20110219
  Serious: Yes (Hospitalization)
  Sender: FDA-Public Use
  Company Number: 1000015080

PATIENT
  Age: 44 Year
  Sex: Female

DRUGS (4)
  1. CITALOPRAM HYDROBROMIDE [Suspect]
     Indication: DEPRESSION
     Dosage: 40 MG (40 MG, 1 IN 1 D),ORAL
     Route: 048
     Dates: end: 20100622
  2. CITALOPRAM HYDROBROMIDE [Suspect]
     Indication: MOOD SWINGS
     Dosage: 40 MG (40 MG, 1 IN 1 D),ORAL
     Route: 048
     Dates: end: 20100622
  3. CITALOPRAM HYDROBROMIDE [Suspect]
     Indication: DEPRESSION
     Dosage: 10 MG (10 MG, 1 IN 1 D),ORAL
     Route: 048
     Dates: start: 20100623, end: 20100712
  4. CITALOPRAM HYDROBROMIDE [Suspect]
     Indication: MOOD SWINGS
     Dosage: 10 MG (10 MG, 1 IN 1 D),ORAL
     Route: 048
     Dates: start: 20100623, end: 20100712

REACTIONS (2)
  - CEREBRAL VASOCONSTRICTION [None]
  - HEADACHE [None]
